FAERS Safety Report 7132422-2 (Version None)
Quarter: 2010Q4

REPORT INFORMATION
  Report Type: 
  Country: None (occurrence: None)
  Receive Date: 20101202
  Receipt Date: 20101124
  Transmission Date: 20110411
  Serious: Yes (Other)
  Sender: FDA-Public Use
  Company Number: BR-ROCHE-672624

PATIENT
  Sex: Female
  Weight: 80 kg

DRUGS (7)
  1. ACTEMRA [Suspect]
     Indication: RHEUMATOID ARTHRITIS
     Dosage: FREQ: 5 AMPOULES/MONTH, MISSED ONE DOSE IN DECEMBER
     Route: 065
     Dates: start: 20091101, end: 20091201
  2. AMYTRIL [Concomitant]
     Indication: FIBROMYALGIA
     Dosage: TAKEN WHEN PRESENTS PAIN
     Dates: start: 20030101
  3. DIPYRONE [Concomitant]
     Indication: HEADACHE
  4. NIMESULIDE [Concomitant]
     Indication: RHEUMATOID ARTHRITIS
     Dates: start: 20090701
  5. PARACETAMOL [Concomitant]
     Indication: RHEUMATOID ARTHRITIS
     Dates: start: 20090701
  6. DEFLAZACORT [Concomitant]
     Indication: RHEUMATOID ARTHRITIS
     Dates: start: 20090701
  7. RANITIDINE [Concomitant]
     Indication: RHEUMATOID ARTHRITIS
     Dates: start: 20090701

REACTIONS (21)
  - ALOPECIA [None]
  - ARTHRALGIA [None]
  - CHEST DISCOMFORT [None]
  - CHEST PAIN [None]
  - CRYING [None]
  - DEPRESSION [None]
  - DISCOMFORT [None]
  - DIZZINESS [None]
  - DRUG ADMINISTRATION ERROR [None]
  - DYSPNOEA [None]
  - FEELING HOT [None]
  - HAIR DISORDER [None]
  - HEADACHE [None]
  - HYPERHIDROSIS [None]
  - JOINT SWELLING [None]
  - MALAISE [None]
  - NAUSEA [None]
  - OROPHARYNGEAL PAIN [None]
  - PAIN IN EXTREMITY [None]
  - PHOTOPSIA [None]
  - VISUAL ACUITY REDUCED [None]
